FAERS Safety Report 15979854 (Version 2)
Quarter: 2019Q1

REPORT INFORMATION
  Report Type: Spontaneous
  Country: US (occurrence: US)
  Receive Date: 20190219
  Receipt Date: 20190325
  Transmission Date: 20190418
  Serious: Yes (Other)
  Sender: FDA-Public Use
  Company Number: US-ACCORD-106813

PATIENT
  Age: 32 Year
  Sex: Female

DRUGS (3)
  1. TOPIRAMATE. [Suspect]
     Active Substance: TOPIRAMATE
     Indication: MIGRAINE PROPHYLAXIS
     Dosage: INITIALLY TOOK 25 MG DAILY,  LATER INCREASED 1 MONTH PRIOR TO EVENT
     Dates: start: 201711, end: 201804
  2. METHOTREXATE. [Concomitant]
     Active Substance: METHOTREXATE
     Indication: UNDIFFERENTIATED CONNECTIVE TISSUE DISEASE
     Dosage: DRUG DISCONTINUED AFTER 4 WEEKS
  3. HYDROXYCHLOROQUINE [Concomitant]
     Active Substance: HYDROXYCHLOROQUINE
     Indication: UNDIFFERENTIATED CONNECTIVE TISSUE DISEASE
     Dosage: DRUG DISCONTINUED IN LESS THAN 1 WEEK

REACTIONS (1)
  - Interstitial granulomatous dermatitis [Recovered/Resolved]

NARRATIVE: CASE EVENT DATE: 201804
